FAERS Safety Report 14676233 (Version 1)
Quarter: 2018Q1

REPORT INFORMATION
  Report Type: Spontaneous
  Country: JP (occurrence: JP)
  Receive Date: 20180323
  Receipt Date: 20180323
  Transmission Date: 20180509
  Serious: Yes (Death, Hospitalization)
  Sender: FDA-Public Use
  Company Number: JP-SEATTLE GENETICS-2018SGN00649

PATIENT
  Age: 83 Year
  Sex: Male

DRUGS (2)
  1. NIVOLUMAB [Suspect]
     Active Substance: NIVOLUMAB
     Indication: LYMPHOPROLIFERATIVE DISORDER
     Route: 065
  2. ADCETRIS [Suspect]
     Active Substance: BRENTUXIMAB VEDOTIN
     Indication: LYMPHOPROLIFERATIVE DISORDER
     Route: 065

REACTIONS (5)
  - Haematemesis [Unknown]
  - Shock haemorrhagic [Fatal]
  - Biliary fistula [Unknown]
  - Melaena [Unknown]
  - Off label use [Unknown]
